FAERS Safety Report 8676807 (Version 2)
Quarter: 2013Q4

REPORT INFORMATION
  Report Type: Spontaneous
  Country: US (occurrence: US)
  Receive Date: 20120723
  Receipt Date: 20131101
  Transmission Date: 20140711
  Serious: No
  Sender: FDA-Public Use
  Company Number: US-009507513-1207USA003042

PATIENT
  Age: 63 Year
  Sex: Male

DRUGS (4)
  1. SINEMET CR [Suspect]
     Indication: PARKINSON^S DISEASE
     Dosage: 25/250MG, Q4H
     Route: 048
     Dates: start: 201205, end: 201205
  2. SINEMET CR [Suspect]
     Dosage: 25/100MG, TID
     Route: 048
     Dates: start: 201205, end: 201205
  3. IBUPROFEN [Concomitant]
  4. CARISOPRODOL [Concomitant]

REACTIONS (6)
  - Arthralgia [Recovering/Resolving]
  - Lethargy [Recovering/Resolving]
  - Memory impairment [Recovering/Resolving]
  - Feeling jittery [Recovering/Resolving]
  - Overdose [Unknown]
  - Drug ineffective [Unknown]
